FAERS Safety Report 7624216-6 (Version None)
Quarter: 2011Q3

REPORT INFORMATION
  Report Type: 
  Country: None (occurrence: None)
  Receive Date: 20110720
  Receipt Date: 20110720
  Transmission Date: 20111222
  Serious: Yes (Other)
  Sender: FDA-Public Use
  Company Number: None

PATIENT
  Age: 57 Year
  Sex: Male
  Weight: 131.54 kg

DRUGS (1)
  1. TRIFLURIDINE [Suspect]
     Indication: EYE INFECTION
     Dosage: 1 DROP
     Route: 047
     Dates: start: 20110620, end: 20110719

REACTIONS (10)
  - ERYTHEMA OF EYELID [None]
  - EYELID OEDEMA [None]
  - EYE IRRITATION [None]
  - FATIGUE [None]
  - VISION BLURRED [None]
  - EYE DISORDER [None]
  - FEAR [None]
  - DIZZINESS [None]
  - EYE PAIN [None]
  - LACRIMATION INCREASED [None]
